FAERS Safety Report 13426834 (Version 5)
Quarter: 2020Q3

REPORT INFORMATION
  Report Type: Spontaneous
  Country: US (occurrence: US)
  Receive Date: 20170411
  Receipt Date: 20200811
  Transmission Date: 20201102
  Serious: Yes (Other)
  Sender: FDA-Public Use
  Company Number: US-PFIZER INC-2017153880

PATIENT
  Age: 62 Year
  Sex: Male
  Weight: 85.28 kg

DRUGS (2)
  1. CELECOXIB. [Suspect]
     Active Substance: CELECOXIB
     Indication: ARTHRITIS
     Dosage: 100 MG, 3X/DAY
     Dates: start: 201511
  2. CELECOXIB. [Suspect]
     Active Substance: CELECOXIB
     Indication: PAIN

REACTIONS (7)
  - Off label use [Unknown]
  - Hypoaesthesia [Unknown]
  - Drug ineffective [Recovering/Resolving]
  - Multiple sclerosis [Unknown]
  - Grip strength decreased [Unknown]
  - Eye pain [Unknown]
  - Intentional product misuse [Unknown]

NARRATIVE: CASE EVENT DATE: 201511
